FAERS Safety Report 15113528 (Version 1)
Quarter: 2018Q3

REPORT INFORMATION
  Report Type: Spontaneous
  Country: ES (occurrence: ES)
  Receive Date: 20180706
  Receipt Date: 20180706
  Transmission Date: 20181010
  Serious: Yes (Hospitalization, Other)
  Sender: FDA-Public Use
  Company Number: ES-AUROBINDO-AUR-APL-2017-08006

PATIENT
  Age: 68 Year
  Sex: Female

DRUGS (3)
  1. ACETYLSALICYLIC ACID [Suspect]
     Active Substance: ASPIRIN
  2. IBUPROFEN. [Suspect]
     Active Substance: IBUPROFEN
     Indication: INFLUENZA LIKE ILLNESS
     Dosage: 400 MILLIGRAM
     Route: 048
  3. IBUPROFEN. [Suspect]
     Active Substance: IBUPROFEN
     Indication: CYSTITIS
     Dosage: 600 MILLIGRAM
     Route: 048

REACTIONS (6)
  - Chills [Recovered/Resolved]
  - Nausea [Recovered/Resolved]
  - Vomiting [Recovered/Resolved]
  - Hypotension [Recovered/Resolved]
  - Pyrexia [Recovered/Resolved]
  - Malaise [Recovered/Resolved]
